FAERS Safety Report 11883305 (Version 1)
Quarter: 2015Q4

REPORT INFORMATION
  Report Type: Spontaneous
  Country: US (occurrence: US)
  Receive Date: 20151231
  Receipt Date: 20151231
  Transmission Date: 20160305
  Serious: No
  Sender: FDA-Public Use
  Company Number: US-TEIKOKU PHARMA USA-TPU2015-00646

PATIENT
  Sex: Female
  Weight: 65.83 kg

DRUGS (6)
  1. LIDOCAINE PATCH [Suspect]
     Active Substance: LIDOCAINE
     Indication: BACK PAIN
     Route: 061
  2. OXYCODONE [Concomitant]
     Active Substance: OXYCODONE
     Indication: ABNORMAL FAECES
     Dosage: 5 -} 10 MG THREE TIMES A DAY
     Dates: start: 2005
  3. OXYCODONE [Concomitant]
     Active Substance: OXYCODONE
     Indication: BACK PAIN
  4. MIRALAX [Concomitant]
     Active Substance: POLYETHYLENE GLYCOL 3350
     Indication: ABNORMAL FAECES
     Dates: start: 2006
  5. SENOKOT [Concomitant]
     Active Substance: SENNOSIDES
     Indication: ABNORMAL FAECES
     Dates: start: 2005
  6. LIDODERM [Concomitant]
     Active Substance: LIDOCAINE
     Indication: BACK PAIN
     Route: 061
     Dates: start: 2004, end: 2014

REACTIONS (1)
  - Drug ineffective for unapproved indication [Unknown]
